FAERS Safety Report 21020347 (Version 1)
Quarter: 2022Q2

REPORT INFORMATION
  Report Type: Report from Study
  Country: CO (occurrence: CO)
  Receive Date: 20220629
  Receipt Date: 20220629
  Transmission Date: 20220721
  Serious: Yes (Other)
  Sender: FDA-Public Use
  Company Number: CO-JNJFOC-20211264935

PATIENT
  Age: 26 Year
  Sex: Female
  Weight: 85 kg

DRUGS (2)
  1. TREMFYA [Suspect]
     Active Substance: GUSELKUMAB
     Indication: Psoriasis
     Route: 058
     Dates: start: 20200502
  2. TREMFYA [Suspect]
     Active Substance: GUSELKUMAB
     Dosage: DATE OF THE LAST APPLICATION OF GUSELKUMAB:26/NOVEMBER/2021
     Route: 058
     Dates: start: 20200925, end: 20211126

REACTIONS (1)
  - Tuberculosis [Recovering/Resolving]

NARRATIVE: CASE EVENT DATE: 20211217
